FAERS Safety Report 16850962 (Version 2)
Quarter: 2019Q4

REPORT INFORMATION
  Report Type: Spontaneous
  Country: US (occurrence: US)
  Receive Date: 20190925
  Receipt Date: 20191220
  Transmission Date: 20200122
  Serious: No
  Sender: FDA-Public Use
  Company Number: US-THERAPEUTICSMD-2019TMD02920

PATIENT
  Age: 75 Year
  Sex: Female
  Weight: 46.71 kg

DRUGS (2)
  1. PREMARIN [Concomitant]
     Active Substance: ESTROGENS, CONJUGATED
     Dosage: USES FOR A MONTH; GOES BACK AND FORTH WITH IMVEXXY
  2. IMVEXXY [Suspect]
     Active Substance: ESTRADIOL
     Indication: CYSTITIS
     Dosage: 10 ?G, 2X/WEEK IN THE AFTERNOON
     Route: 067

REACTIONS (3)
  - Insomnia [Unknown]
  - Vaginal discharge [Not Recovered/Not Resolved]
  - Off label use [Not Recovered/Not Resolved]

NARRATIVE: CASE EVENT DATE: 20190827
